FAERS Safety Report 5689348-0 (Version None)
Quarter: 2008Q1

REPORT INFORMATION
  Report Type: 
  Country: None (occurrence: None)
  Receive Date: 20080331
  Receipt Date: 20080325
  Transmission Date: 20080703
  Serious: Yes (Other)
  Sender: FDA-Public Use
  Company Number: AT-PFIZER INC-2006151958

PATIENT
  Age: 32 Year
  Sex: Female

DRUGS (3)
  1. ZOLOFT [Suspect]
     Route: 048
  2. ZYPREXA [Concomitant]
  3. LAMICTAL [Concomitant]
     Indication: BIPOLAR DISORDER
     Dosage: DAILY DOSE:250MG

REACTIONS (8)
  - CARDIAC DISORDER [None]
  - DEJA VU [None]
  - GRAND MAL CONVULSION [None]
  - HALLUCINATION [None]
  - HEAD INJURY [None]
  - NIGHT SWEATS [None]
  - SLEEP DISORDER [None]
  - TONGUE INJURY [None]
